FAERS Safety Report 19084304 (Version 1)
Quarter: 2021Q2

REPORT INFORMATION
  Report Type: Other
  Country: GB (occurrence: GB)
  Receive Date: 20210401
  Receipt Date: 20210401
  Transmission Date: 20210717
  Serious: No
  Sender: FDA-Public Use
  Company Number: GB-LUPIN PHARMACEUTICALS INC.-2021-03832

PATIENT
  Age: 21 Year
  Sex: Female
  Weight: 102.96 kg

DRUGS (1)
  1. SERTRALINE [Suspect]
     Active Substance: SERTRALINE HYDROCHLORIDE
     Indication: DEPRESSION
     Dosage: 75 MILLIGRAM
     Route: 048
     Dates: start: 20180201

REACTIONS (5)
  - Nausea [Unknown]
  - Blood caffeine increased [Recovering/Resolving]
  - Tremor [Unknown]
  - Dizziness [Unknown]
  - Anxiety [Unknown]

NARRATIVE: CASE EVENT DATE: 20210313
